FAERS Safety Report 11777285 (Version 1)
Quarter: 2015Q4

REPORT INFORMATION
  Report Type: Spontaneous
  Country: US (occurrence: US)
  Receive Date: 20151125
  Receipt Date: 20151125
  Transmission Date: 20160304
  Serious: No
  Sender: FDA-Public Use
  Company Number: US-MALLINCKRODT-T201502329

PATIENT
  Sex: Male

DRUGS (2)
  1. GABLOFEN [Suspect]
     Active Substance: BACLOFEN
     Dosage: 126.37 MCG/DAY
     Route: 037
  2. GABLOFEN [Suspect]
     Active Substance: BACLOFEN
     Indication: MUSCLE SPASTICITY
     Dosage: 135 MCG/DAY
     Route: 037

REACTIONS (4)
  - Muscular weakness [Recovered/Resolved]
  - Device issue [Recovered/Resolved]
  - Dysstasia [Recovered/Resolved]
  - Drug effect decreased [Recovered/Resolved]
